FAERS Safety Report 18313068 (Version 2)
Quarter: 2020Q4

REPORT INFORMATION
  Report Type: Spontaneous
  Country: US (occurrence: US)
  Receive Date: 20200925
  Receipt Date: 20201016
  Transmission Date: 20210113
  Serious: Yes (Hospitalization)
  Sender: FDA-Public Use
  Company Number: US-SHIRE-US202030772

PATIENT
  Age: 75 Year
  Sex: Female

DRUGS (8)
  1. GATTEX [Suspect]
     Active Substance: TEDUGLUTIDE\WATER
     Indication: PRODUCT USED FOR UNKNOWN INDICATION
     Dosage: 0.1750 UNK, 1X/DAY:QD
     Route: 058
     Dates: start: 20171223
  2. GATTEX [Suspect]
     Active Substance: TEDUGLUTIDE\WATER
     Dosage: 0.1750 UNK, 1X/DAY:QD
     Route: 058
     Dates: start: 20171223, end: 20201012
  3. GATTEX [Suspect]
     Active Substance: TEDUGLUTIDE\WATER
     Dosage: 0.1750 UNK, 1X/DAY:QD
     Route: 058
     Dates: start: 20171223, end: 20201012
  4. GATTEX [Suspect]
     Active Substance: TEDUGLUTIDE\WATER
     Indication: PRODUCT USED FOR UNKNOWN INDICATION
     Dosage: 0.1750 UNK, 1X/DAY:QD
     Route: 058
     Dates: start: 20171223
  5. GATTEX [Suspect]
     Active Substance: TEDUGLUTIDE\WATER
     Indication: PRODUCT USED FOR UNKNOWN INDICATION
     Dosage: 0.1750 UNK, 1X/DAY:QD
     Route: 058
     Dates: start: 20171223
  6. GATTEX [Suspect]
     Active Substance: TEDUGLUTIDE\WATER
     Dosage: 0.1750 UNK, 1X/DAY:QD
     Route: 058
     Dates: start: 20171223, end: 20201012
  7. GATTEX [Suspect]
     Active Substance: TEDUGLUTIDE\WATER
     Dosage: 0.1750 UNK, 1X/DAY:QD
     Route: 058
     Dates: start: 20171223, end: 20201012
  8. GATTEX [Suspect]
     Active Substance: TEDUGLUTIDE\WATER
     Indication: PRODUCT USED FOR UNKNOWN INDICATION
     Dosage: 0.1750 UNK, 1X/DAY:QD
     Route: 058
     Dates: start: 20171223

REACTIONS (2)
  - Weight decreased [Unknown]
  - Hospitalisation [Recovered/Resolved]

NARRATIVE: CASE EVENT DATE: 20200910
